FAERS Safety Report 20652915 (Version 2)
Quarter: 2022Q2

REPORT INFORMATION
  Report Type: Spontaneous
  Country: TR (occurrence: TR)
  Receive Date: 20220330
  Receipt Date: 20220401
  Transmission Date: 20220721
  Serious: Yes (Hospitalization)
  Sender: FDA-Public Use
  Company Number: TR-UCBSA-2022017629

PATIENT
  Age: 22 Year
  Sex: Male

DRUGS (2)
  1. KEPPRA [Suspect]
     Active Substance: LEVETIRACETAM
     Indication: Temporal lobe epilepsy
     Dosage: 1000 MILLIGRAM, 2X/DAY (BID)
  2. KEPPRA [Suspect]
     Active Substance: LEVETIRACETAM
     Dosage: 75.000 MILLIGRAMS

REACTIONS (11)
  - Suicide attempt [Unknown]
  - Intentional overdose [Unknown]
  - Somnolence [Recovered/Resolved]
  - Agitation [Recovered/Resolved]
  - Aggression [Recovered/Resolved]
  - Hyporeflexia [Recovered/Resolved]
  - Hypotonia [Unknown]
  - Sinus bradycardia [Recovered/Resolved]
  - Depression [Unknown]
  - Drug level increased [Recovered/Resolved]
  - Ventricular extrasystoles [Recovered/Resolved]
